FAERS Safety Report 6864385-9 (Version None)
Quarter: 2010Q3

REPORT INFORMATION
  Report Type: 
  Country: None (occurrence: None)
  Receive Date: 20100721
  Receipt Date: 20080917
  Transmission Date: 20110219
  Serious: No
  Sender: FDA-Public Use
  Company Number: US-PFIZER INC-2008026422

PATIENT
  Sex: Female
  Weight: 65.9 kg

DRUGS (4)
  1. CHANTIX [Suspect]
     Indication: SMOKING CESSATION THERAPY
     Dates: start: 20080220
  2. CELEBREX [Concomitant]
     Route: 048
  3. EVISTA [Concomitant]
     Route: 048
  4. VYTORIN [Concomitant]

REACTIONS (1)
  - MUSCLE SPASMS [None]
